FAERS Safety Report 5155203-8 (Version None)
Quarter: 2006Q4

REPORT INFORMATION
  Report Type: 
  Country: None (occurrence: None)
  Receive Date: 20061121
  Receipt Date: 20061113
  Transmission Date: 20070319
  Serious: Yes (Life-Threatening, Hospitalization, Other)
  Sender: FDA-Public Use
  Company Number: GB-JNJFOC-20061103001

PATIENT
  Age: 49 Year
  Sex: Male

DRUGS (1)
  1. REMICADE [Suspect]
     Indication: DRUG USE FOR UNKNOWN INDICATION
     Dosage: 3 INFUSIONS
     Route: 042

REACTIONS (1)
  - PULMONARY TUBERCULOSIS [None]
